FAERS Safety Report 10061972 (Version 1)
Quarter: 2014Q2

REPORT INFORMATION
  Report Type: Spontaneous
  Country: US (occurrence: US)
  Receive Date: 20140407
  Receipt Date: 20140407
  Transmission Date: 20141212
  Serious: No
  Sender: FDA-Public Use
  Company Number: US-009507513-1403USA005287

PATIENT
  Sex: Female
  Weight: 62.59 kg

DRUGS (2)
  1. OXYTROL FOR WOMEN [Suspect]
     Indication: INCONTINENCE
     Dosage: UNK, BIW
     Route: 062
     Dates: start: 2013, end: 2014
  2. OXYTROL FOR WOMEN [Suspect]
     Dosage: UNK, BIW
     Route: 062
     Dates: start: 2013, end: 2014

REACTIONS (2)
  - Drug effect decreased [Unknown]
  - Product packaging issue [Unknown]
